FAERS Safety Report 10064517 (Version 2)
Quarter: 2014Q2

REPORT INFORMATION
  Report Type: Report from Study
  Country: CN (occurrence: CN)
  Receive Date: 20140408
  Receipt Date: 20140520
  Transmission Date: 20141212
  Serious: Yes (Hospitalization)
  Sender: FDA-Public Use
  Company Number: CN-ROCHE-1372011

PATIENT
  Age: 76 Year
  Sex: Male

DRUGS (304)
  1. VITAMIN C TABLETS [Concomitant]
     Route: 065
     Dates: start: 20131219, end: 20131225
  2. VITAMIN C TABLETS [Concomitant]
     Route: 065
     Dates: start: 20111214, end: 20111219
  3. LORATADINE [Concomitant]
     Indication: RHINITIS ALLERGIC
     Route: 065
     Dates: start: 20111230, end: 20120105
  4. PLASBUMIN-25 [Concomitant]
     Route: 065
     Dates: start: 20120117, end: 20120119
  5. VITAMIN E CAPSULES [Concomitant]
     Route: 065
     Dates: start: 20120117, end: 20120120
  6. VITAMIN E CAPSULES [Concomitant]
     Route: 065
     Dates: start: 20120120, end: 20120202
  7. VITAMIN E CAPSULES [Concomitant]
     Route: 065
     Dates: start: 20120210, end: 20120223
  8. VITAMIN E CAPSULES [Concomitant]
     Route: 065
     Dates: start: 20120323, end: 20120329
  9. VITAMIN E CAPSULES [Concomitant]
     Route: 065
     Dates: start: 20120329, end: 20120411
  10. VITAMIN E CAPSULES [Concomitant]
     Route: 065
     Dates: start: 20120419, end: 20120502
  11. VITAMIN E CAPSULES [Concomitant]
     Route: 065
     Dates: start: 20120509, end: 20120520
  12. VITAMIN E CAPSULES [Concomitant]
     Route: 065
     Dates: start: 20120601, end: 20120614
  13. VITAMIN E CAPSULES [Concomitant]
     Route: 065
     Dates: start: 20120713, end: 20120726
  14. VITAMIN E CAPSULES [Concomitant]
     Route: 065
     Dates: start: 20120625, end: 20120705
  15. VITAMIN E CAPSULES [Concomitant]
     Route: 065
     Dates: start: 20120803, end: 20120816
  16. VITAMIN E CAPSULES [Concomitant]
     Route: 065
     Dates: start: 20120824, end: 20120907
  17. VITAMIN E CAPSULES [Concomitant]
     Route: 065
     Dates: start: 20120913, end: 20120928
  18. VITAMIN E CAPSULES [Concomitant]
     Route: 065
     Dates: start: 20121009, end: 20121022
  19. VITAMIN E CAPSULES [Concomitant]
     Route: 065
     Dates: start: 20121101, end: 20121114
  20. VITAMIN E CAPSULES [Concomitant]
     Route: 065
     Dates: start: 20130127, end: 20130212
  21. VITAMIN E CAPSULES [Concomitant]
     Route: 065
     Dates: start: 20130220, end: 20130305
  22. VITAMIN E CAPSULES [Concomitant]
     Route: 065
     Dates: start: 20130404, end: 20130410
  23. VITAMIN E CAPSULES [Concomitant]
     Route: 065
     Dates: start: 20130425, end: 20130508
  24. VITAMIN E CAPSULES [Concomitant]
     Route: 065
     Dates: start: 20130516, end: 20130529
  25. VITAMIN E CAPSULES [Concomitant]
     Route: 065
     Dates: start: 20130606, end: 20130619
  26. VITAMIN E CAPSULES [Concomitant]
     Route: 065
     Dates: start: 20130627, end: 20130706
  27. VITAMIN E CAPSULES [Concomitant]
     Route: 065
     Dates: start: 20130718, end: 20130731
  28. VITAMIN E CAPSULES [Concomitant]
     Route: 065
     Dates: start: 20130808, end: 20130821
  29. VITAMIN E CAPSULES [Concomitant]
     Route: 065
     Dates: start: 20130829, end: 20130911
  30. VITAMIN E CAPSULES [Concomitant]
     Route: 065
     Dates: start: 20130926, end: 20131009
  31. VITAMIN E CAPSULES [Concomitant]
     Route: 065
     Dates: start: 20131017, end: 20131030
  32. VITAMIN E CAPSULES [Concomitant]
     Route: 065
     Dates: start: 20131219, end: 20131225
  33. VITAMIN E CAPSULES [Concomitant]
     Route: 065
     Dates: start: 20130314, end: 20130327
  34. VITAMIN B COMPLEX [Concomitant]
     Route: 065
     Dates: start: 20120317, end: 20120320
  35. VITAMIN B COMPLEX [Concomitant]
     Route: 065
     Dates: start: 20120120, end: 20120202
  36. VITAMIN B COMPLEX [Concomitant]
     Route: 065
     Dates: start: 20120210, end: 20120223
  37. VITAMIN B COMPLEX [Concomitant]
     Route: 065
     Dates: start: 20120302, end: 20120316
  38. VITAMIN B COMPLEX [Concomitant]
     Route: 065
     Dates: start: 20120323, end: 20120329
  39. VITAMIN B COMPLEX [Concomitant]
     Route: 065
     Dates: start: 20120329, end: 20120411
  40. VITAMIN B COMPLEX [Concomitant]
     Route: 065
     Dates: start: 20120419, end: 20120502
  41. VITAMIN B COMPLEX [Concomitant]
     Route: 065
     Dates: start: 20120509, end: 20120522
  42. VITAMIN B COMPLEX [Concomitant]
     Route: 065
     Dates: start: 20120713, end: 20120726
  43. VITAMIN B COMPLEX [Concomitant]
     Route: 065
     Dates: start: 20120803, end: 20120816
  44. VITAMIN B COMPLEX [Concomitant]
     Route: 065
     Dates: start: 20120824, end: 20120907
  45. VITAMIN B COMPLEX [Concomitant]
     Route: 065
     Dates: start: 20120913, end: 20120928
  46. VITAMIN B COMPLEX [Concomitant]
     Route: 065
     Dates: start: 20121009, end: 20121022
  47. VITAMIN B COMPLEX [Concomitant]
     Route: 065
     Dates: start: 20121101, end: 20121114
  48. VITAMIN B COMPLEX [Concomitant]
     Route: 065
     Dates: start: 20130127, end: 20130212
  49. VITAMIN B COMPLEX [Concomitant]
     Route: 065
     Dates: start: 20130220, end: 20130305
  50. VITAMIN B COMPLEX [Concomitant]
     Route: 065
     Dates: start: 20130314, end: 20130327
  51. VITAMIN B COMPLEX [Concomitant]
     Route: 065
     Dates: start: 20130404, end: 20130410
  52. VITAMIN B COMPLEX [Concomitant]
     Route: 065
     Dates: start: 20130425, end: 20130508
  53. VITAMIN B COMPLEX [Concomitant]
     Route: 065
     Dates: start: 20130516, end: 20130529
  54. VITAMIN B COMPLEX [Concomitant]
     Route: 065
     Dates: start: 20130606, end: 20130619
  55. VITAMIN B COMPLEX [Concomitant]
     Route: 065
     Dates: start: 20130718, end: 20130731
  56. VITAMIN B COMPLEX [Concomitant]
     Route: 065
     Dates: start: 20130808, end: 20130821
  57. VITAMIN B COMPLEX [Concomitant]
     Route: 065
     Dates: start: 20130829, end: 20130911
  58. VITAMIN B COMPLEX [Concomitant]
     Route: 065
     Dates: start: 20130926, end: 20131009
  59. VITAMIN B COMPLEX [Concomitant]
     Route: 065
     Dates: start: 20131017, end: 20131030
  60. VITAMIN B COMPLEX [Concomitant]
     Route: 065
     Dates: start: 20131219, end: 20131225
  61. GLOSSY GANODERMA [Concomitant]
     Route: 065
     Dates: start: 20120120, end: 20120206
  62. INVERT SUGAR [Concomitant]
     Route: 065
     Dates: start: 20120209, end: 20120210
  63. INVERT SUGAR [Concomitant]
     Route: 065
     Dates: start: 20120321, end: 20120329
  64. INVERT SUGAR [Concomitant]
     Route: 065
     Dates: start: 20120418, end: 20120419
  65. INVERT SUGAR [Concomitant]
     Route: 065
     Dates: start: 20120509, end: 20120510
  66. INVERT SUGAR [Concomitant]
     Route: 065
     Dates: start: 20120531, end: 20120531
  67. INVERT SUGAR [Concomitant]
     Route: 065
     Dates: start: 20120621, end: 20120621
  68. INVERT SUGAR [Concomitant]
     Route: 065
     Dates: start: 20120712, end: 20120712
  69. INVERT SUGAR [Concomitant]
     Route: 065
     Dates: start: 20120802, end: 20120802
  70. INVERT SUGAR [Concomitant]
     Route: 065
     Dates: start: 20120823, end: 20120823
  71. INVERT SUGAR [Concomitant]
     Route: 065
     Dates: start: 20120914, end: 20120914
  72. INVERT SUGAR [Concomitant]
     Route: 065
     Dates: start: 20121008, end: 20121008
  73. INVERT SUGAR [Concomitant]
     Route: 065
     Dates: start: 20121031, end: 20121031
  74. INVERT SUGAR [Concomitant]
     Route: 065
     Dates: start: 20121121, end: 20121121
  75. INVERT SUGAR [Concomitant]
     Route: 065
     Dates: start: 20121212, end: 20121212
  76. INVERT SUGAR [Concomitant]
     Route: 065
     Dates: start: 20130105, end: 20130105
  77. INVERT SUGAR [Concomitant]
     Route: 065
     Dates: start: 20130219, end: 20130219
  78. INVERT SUGAR [Concomitant]
     Route: 065
     Dates: start: 20130313, end: 20130313
  79. INVERT SUGAR [Concomitant]
     Route: 065
     Dates: start: 20130403, end: 20130403
  80. INVERT SUGAR [Concomitant]
     Route: 065
     Dates: start: 20130424, end: 20130424
  81. INVERT SUGAR [Concomitant]
     Route: 065
     Dates: start: 20130515, end: 20130515
  82. INVERT SUGAR [Concomitant]
     Route: 065
     Dates: start: 20130717, end: 20130717
  83. INVERT SUGAR [Concomitant]
     Route: 065
     Dates: start: 20130807, end: 20130807
  84. INVERT SUGAR [Concomitant]
     Route: 065
     Dates: start: 20130828, end: 20130828
  85. INVERT SUGAR [Concomitant]
     Route: 065
     Dates: start: 20130925, end: 20130925
  86. INVERT SUGAR [Concomitant]
     Route: 065
     Dates: start: 20131113, end: 20131113
  87. INVERT SUGAR [Concomitant]
     Route: 065
     Dates: start: 20131218, end: 20131218
  88. INVERT SUGAR [Concomitant]
     Route: 065
     Dates: start: 20140115, end: 20140115
  89. INVERT SUGAR [Concomitant]
     Route: 065
     Dates: start: 20140212, end: 20140212
  90. INVERT SUGAR [Concomitant]
     Route: 065
     Dates: start: 20140312, end: 20140312
  91. INVERT SUGAR [Concomitant]
     Route: 065
     Dates: start: 20111214, end: 20111219
  92. PANCREATIN [Concomitant]
     Indication: DYSPEPSIA
     Route: 065
     Dates: start: 20120117, end: 20120120
  93. PANCREATIN [Concomitant]
     Route: 065
     Dates: start: 20120622, end: 20120705
  94. LENTINAN [Concomitant]
     Route: 065
     Dates: start: 20120209, end: 20120210
  95. LENTINAN [Concomitant]
     Route: 065
     Dates: start: 20120321, end: 20120329
  96. LENTINAN [Concomitant]
     Route: 065
     Dates: start: 20120418, end: 20120419
  97. LENTINAN [Concomitant]
     Route: 065
     Dates: start: 20120509, end: 20120510
  98. LENTINAN [Concomitant]
     Route: 065
     Dates: start: 20120531, end: 20120531
  99. LENTINAN [Concomitant]
     Route: 065
     Dates: start: 20120621, end: 20120621
  100. LENTINAN [Concomitant]
     Route: 065
     Dates: start: 20120712, end: 20120712
  101. LENTINAN [Concomitant]
     Route: 065
     Dates: start: 20120802, end: 20120802
  102. LENTINAN [Concomitant]
     Route: 065
     Dates: start: 20120823, end: 20120823
  103. LENTINAN [Concomitant]
     Route: 065
     Dates: start: 20120914, end: 20120914
  104. LENTINAN [Concomitant]
     Route: 065
     Dates: start: 20121008, end: 20121008
  105. LENTINAN [Concomitant]
     Route: 065
     Dates: start: 20121031, end: 20121031
  106. LENTINAN [Concomitant]
     Route: 065
     Dates: start: 20121121, end: 20121121
  107. LENTINAN [Concomitant]
     Route: 065
     Dates: start: 20121212, end: 20121212
  108. LENTINAN [Concomitant]
     Route: 065
     Dates: start: 20130105, end: 20130105
  109. LENTINAN [Concomitant]
     Route: 065
     Dates: start: 20130129, end: 20130129
  110. LENTINAN [Concomitant]
     Route: 065
     Dates: start: 20130219, end: 20130219
  111. LENTINAN [Concomitant]
     Route: 065
     Dates: start: 20130313, end: 20130313
  112. LENTINAN [Concomitant]
     Route: 065
     Dates: start: 20130403, end: 20130403
  113. LENTINAN [Concomitant]
     Route: 065
     Dates: start: 20130424, end: 20130424
  114. LENTINAN [Concomitant]
     Route: 065
     Dates: start: 20130515, end: 20130515
  115. LENTINAN [Concomitant]
     Route: 065
     Dates: start: 20130717, end: 20130717
  116. LENTINAN [Concomitant]
     Route: 065
     Dates: start: 20130807, end: 20130807
  117. LENTINAN [Concomitant]
     Route: 065
     Dates: start: 20130828, end: 20130828
  118. LENTINAN [Concomitant]
     Route: 065
     Dates: start: 20130925, end: 20130925
  119. LENTINAN [Concomitant]
     Route: 065
     Dates: start: 20131113, end: 20131113
  120. LENTINAN [Concomitant]
     Route: 065
     Dates: start: 20131218, end: 20131218
  121. LENTINAN [Concomitant]
     Route: 065
     Dates: start: 20140115, end: 20140115
  122. LENTINAN [Concomitant]
     Route: 065
     Dates: start: 20140212, end: 20140212
  123. LENTINAN [Concomitant]
     Route: 065
     Dates: start: 20140312, end: 20140312
  124. HEPARIN CALCIUM [Concomitant]
     Route: 065
     Dates: start: 20120302, end: 20120303
  125. THYMOPETIDUM [Concomitant]
     Route: 065
     Dates: start: 20120321, end: 20120327
  126. INTERLEUKIN-11 [Concomitant]
     Indication: THROMBOCYTOPENIA
     Route: 065
     Dates: start: 20120326, end: 20120328
  127. FILGRASTIM [Concomitant]
     Indication: NEUTROPENIA
     Route: 065
     Dates: start: 20120326, end: 20120326
  128. MECOBALAMIN [Concomitant]
     Route: 065
     Dates: start: 20120419, end: 20120425
  129. MECOBALAMIN [Concomitant]
     Route: 065
     Dates: start: 20130220, end: 20130305
  130. MECOBALAMIN [Concomitant]
     Route: 065
     Dates: start: 20130314, end: 20130320
  131. PANTOPRAZOLE SODIUM [Concomitant]
     Route: 065
     Dates: start: 20121031, end: 20121031
  132. PANTOPRAZOLE SODIUM [Concomitant]
     Route: 065
     Dates: start: 20121121, end: 20121121
  133. PANTOPRAZOLE SODIUM [Concomitant]
     Route: 065
     Dates: start: 20121212, end: 20121212
  134. PANTOPRAZOLE SODIUM [Concomitant]
     Route: 065
     Dates: start: 20130106, end: 20130107
  135. OMEPRAZOLE SODIUM [Concomitant]
     Route: 065
     Dates: start: 20130219, end: 20130219
  136. OMEPRAZOLE SODIUM [Concomitant]
     Route: 065
     Dates: start: 20130313, end: 20130313
  137. OMEPRAZOLE SODIUM [Concomitant]
     Route: 065
     Dates: start: 20130403, end: 20130403
  138. OMEPRAZOLE SODIUM [Concomitant]
     Route: 065
     Dates: start: 20130807, end: 20130807
  139. OMEPRAZOLE SODIUM [Concomitant]
     Route: 065
     Dates: start: 20131113, end: 20131113
  140. NIFEDIPINE CR [Concomitant]
     Route: 065
     Dates: start: 20130425, end: 20130501
  141. NIFEDIPINE CR [Concomitant]
     Route: 065
     Dates: start: 20131114, end: 20131120
  142. FAMOTIDINE [Concomitant]
     Indication: PEPTIC ULCER
     Route: 065
     Dates: start: 20130829, end: 20130830
  143. FAMOTIDINE [Concomitant]
     Route: 065
     Dates: start: 20131017, end: 20131017
  144. VITAMIN C [Concomitant]
     Route: 065
     Dates: start: 20111214, end: 20111219
  145. VITAMIN C [Concomitant]
     Route: 065
     Dates: start: 20120622, end: 20120705
  146. ESOMEPRAZOLE MAGNESIUM [Concomitant]
     Route: 065
     Dates: start: 20111220, end: 20111221
  147. ESOMEPRAZOLE MAGNESIUM [Concomitant]
     Route: 065
     Dates: start: 20120417, end: 20120419
  148. ESOMEPRAZOLE MAGNESIUM [Concomitant]
     Route: 065
     Dates: start: 20120509, end: 20120510
  149. ESOMEPRAZOLE MAGNESIUM [Concomitant]
     Route: 065
     Dates: start: 20120621, end: 20120621
  150. FUROSEMIDE [Concomitant]
     Route: 065
     Dates: start: 20111220, end: 20111220
  151. FUROSEMIDE [Concomitant]
     Route: 065
     Dates: start: 20111228, end: 20111228
  152. THYMOSIN ALPHA-1 [Concomitant]
     Route: 065
     Dates: start: 20120417, end: 20120419
  153. THYMOSIN ALPHA-1 [Concomitant]
     Route: 065
     Dates: start: 20120509, end: 20120510
  154. THYMOSIN ALPHA-1 [Concomitant]
     Route: 065
     Dates: start: 20120531, end: 20120531
  155. SPLEEN AMINOPEPTIDE [Concomitant]
     Indication: RHINITIS ALLERGIC
     Route: 048
     Dates: start: 20111230, end: 20120108
  156. SPLEEN AMINOPEPTIDE [Concomitant]
     Dosage: LYOPHILIZED
     Route: 048
     Dates: start: 20120210, end: 20120214
  157. SPLEEN AMINOPEPTIDE [Concomitant]
     Dosage: LYOPHILIZED
     Route: 048
     Dates: start: 20120303, end: 20120309
  158. SPLEEN AMINOPEPTIDE [Concomitant]
     Dosage: LYOPHILIZED
     Route: 048
     Dates: start: 20120321, end: 20120329
  159. SPLEEN AMINOPEPTIDE [Concomitant]
     Dosage: LYOPHILIZED
     Route: 048
     Dates: start: 20120329, end: 20120329
  160. SPLEEN AMINOPEPTIDE [Concomitant]
     Dosage: LYOPHILIZED
     Route: 048
     Dates: start: 20120417, end: 20120419
  161. SPLEEN AMINOPEPTIDE [Concomitant]
     Dosage: LYOPHILIZED
     Route: 048
     Dates: start: 20120419, end: 20120420
  162. SPLEEN AMINOPEPTIDE [Concomitant]
     Dosage: LYOPHILIZED
     Route: 048
     Dates: start: 20120509, end: 20120513
  163. SPLEEN AMINOPEPTIDE [Concomitant]
     Dosage: LYOPHILIZED
     Route: 048
     Dates: start: 20120601, end: 20120605
  164. SPLEEN AMINOPEPTIDE [Concomitant]
     Dosage: LYOPHILIZED
     Route: 048
     Dates: start: 20120713, end: 20120717
  165. SPLEEN AMINOPEPTIDE [Concomitant]
     Dosage: LYOPHILIZED
     Route: 048
     Dates: start: 20120622, end: 20120626
  166. SPLEEN AMINOPEPTIDE [Concomitant]
     Dosage: LYOPHILIZED
     Route: 048
     Dates: start: 20120803, end: 20120807
  167. SPLEEN AMINOPEPTIDE [Concomitant]
     Dosage: LYOPHILIZED
     Route: 048
     Dates: start: 20120824, end: 20120828
  168. SPLEEN AMINOPEPTIDE [Concomitant]
     Dosage: LYOPHILIZED
     Route: 048
     Dates: start: 20120913, end: 20120919
  169. SPLEEN AMINOPEPTIDE [Concomitant]
     Dosage: LYOPHILIZED
     Route: 048
     Dates: start: 20121009, end: 20121018
  170. SPLEEN AMINOPEPTIDE [Concomitant]
     Dosage: LYOPHILIZED
     Route: 048
     Dates: start: 20121101, end: 20121110
  171. SPLEEN AMINOPEPTIDE [Concomitant]
     Dosage: LYOPHILIZED
     Route: 048
     Dates: start: 20121122, end: 20121126
  172. SPLEEN AMINOPEPTIDE [Concomitant]
     Dosage: LYOPHILIZED
     Route: 048
     Dates: start: 20121213, end: 20121217
  173. SPLEEN AMINOPEPTIDE [Concomitant]
     Dosage: LYOPHILIZED
     Route: 048
     Dates: start: 20130106, end: 20130115
  174. SPLEEN AMINOPEPTIDE [Concomitant]
     Dosage: LYOPHILIZED
     Route: 048
     Dates: start: 20130130, end: 20130203
  175. SPLEEN AMINOPEPTIDE [Concomitant]
     Dosage: LYOPHILIZED
     Route: 048
     Dates: start: 20130220, end: 20130224
  176. SPLEEN AMINOPEPTIDE [Concomitant]
     Dosage: LYOPHILIZED
     Route: 048
     Dates: start: 20130314, end: 20130318
  177. SPLEEN AMINOPEPTIDE [Concomitant]
     Dosage: LYOPHILIZED
     Route: 048
     Dates: start: 20130404, end: 20130413
  178. SPLEEN AMINOPEPTIDE [Concomitant]
     Dosage: LYOPHILIZED
     Route: 048
     Dates: start: 20130425, end: 20130504
  179. SPLEEN AMINOPEPTIDE [Concomitant]
     Dosage: LYOPHILIZED
     Route: 048
     Dates: start: 20130516, end: 20130525
  180. SPLEEN AMINOPEPTIDE [Concomitant]
     Dosage: LYOPHILIZED
     Route: 048
     Dates: start: 20130606, end: 20130610
  181. SPLEEN AMINOPEPTIDE [Concomitant]
     Dosage: LYOPHILIZED
     Route: 048
     Dates: start: 20130627, end: 20130701
  182. SPLEEN AMINOPEPTIDE [Concomitant]
     Dosage: LYOPHILIZED
     Route: 048
     Dates: start: 20130718, end: 20130727
  183. SPLEEN AMINOPEPTIDE [Concomitant]
     Dosage: LYOPHILIZED
     Route: 048
     Dates: start: 20130808, end: 20130817
  184. SPLEEN AMINOPEPTIDE [Concomitant]
     Dosage: LYOPHILIZED
     Route: 048
     Dates: start: 20130829, end: 20130902
  185. SPLEEN AMINOPEPTIDE [Concomitant]
     Dosage: LYOPHILIZED
     Route: 048
     Dates: start: 20131017, end: 20131026
  186. SPLEEN AMINOPEPTIDE [Concomitant]
     Dosage: LYOPHILIZED
     Route: 048
     Dates: start: 20131114, end: 20131123
  187. SPLEEN AMINOPEPTIDE [Concomitant]
     Dosage: LYOPHILIZED
     Route: 048
     Dates: start: 20131219, end: 20131228
  188. SPLEEN AMINOPEPTIDE [Concomitant]
     Dosage: LYOPHILIZED
     Route: 048
     Dates: start: 20140116, end: 20140120
  189. SPLEEN AMINOPEPTIDE [Concomitant]
     Dosage: LYOPHILIZED
     Route: 048
     Dates: start: 20140213, end: 20140220
  190. BEVACIZUMAB [Suspect]
     Indication: NON-SMALL CELL LUNG CANCER
     Dosage: LAST DOSE PRIOR TO SAE : 12/MAR/2014
     Route: 042
     Dates: start: 20111228
  191. CARBOPLATIN [Suspect]
     Indication: NON-SMALL CELL LUNG CANCER
     Dosage: LAST DOSE PRIOR TO SAE 18 APR 2012, (585 MG)
     Route: 042
     Dates: start: 20111228, end: 20120418
  192. PACLITAXEL [Suspect]
     Indication: NON-SMALL CELL LUNG CANCER
     Dosage: LAST DOSE PRIOR TO SAE 18 APR 2012 (311 MG)
     Route: 042
     Dates: start: 20111228, end: 20120418
  193. ATORVASTATIN CALCIUM [Concomitant]
     Route: 065
     Dates: start: 20130829, end: 20130911
  194. ATORVASTATIN CALCIUM [Concomitant]
     Route: 065
     Dates: start: 20131219, end: 20131225
  195. ATORVASTATIN CALCIUM [Concomitant]
     Route: 065
     Dates: start: 20140116, end: 20140122
  196. ATORVASTATIN CALCIUM [Concomitant]
     Route: 065
     Dates: start: 20140213, end: 20140226
  197. ATORVASTATIN CALCIUM [Concomitant]
     Route: 065
     Dates: start: 20140313, end: 20140319
  198. ATORVASTATIN CALCIUM [Concomitant]
     Route: 065
     Dates: start: 20140325
  199. DEXTROMETHORPHAN HYDROBROMIDE [Concomitant]
     Indication: UPPER RESPIRATORY TRACT INFECTION
     Route: 065
     Dates: start: 20111230, end: 20120105
  200. DEXTROMETHORPHAN HYDROBROMIDE [Concomitant]
     Indication: COUGH
     Route: 065
     Dates: start: 20140228, end: 20140304
  201. CEFTERAM PIVOXIL [Concomitant]
     Indication: UPPER RESPIRATORY TRACT INFECTION
     Route: 065
     Dates: start: 20140228, end: 20140303
  202. ESOMEPRAZOLE SODIUM [Concomitant]
     Route: 065
     Dates: start: 20140212, end: 20140212
  203. ESOMEPRAZOLE SODIUM [Concomitant]
     Route: 065
     Dates: start: 20140312, end: 20140312
  204. ACETYLCYSTEINE [Concomitant]
     Route: 065
     Dates: start: 20111213, end: 20111230
  205. METHOXYPHENAMINE HYDROCHLORIDE [Concomitant]
     Indication: COUGH
     Route: 065
     Dates: start: 20111213, end: 20111230
  206. MOXIFLOXACIN HYDROCHLORIDE [Concomitant]
     Indication: POSTOPERATIVE WOUND INFECTION
     Route: 065
     Dates: start: 20111214, end: 20111230
  207. MEGESTROL ACETATE [Concomitant]
     Route: 065
     Dates: start: 20111217, end: 20120106
  208. MEGESTROL ACETATE [Concomitant]
     Route: 065
     Dates: start: 20120117, end: 20120120
  209. MEGESTROL ACETATE [Concomitant]
     Route: 065
     Dates: start: 20120120, end: 20120126
  210. POTASSIUM CHLORIDE SR [Concomitant]
     Route: 065
     Dates: start: 20111218, end: 20111229
  211. POLYENEPHOSPHATIDYL CHOLINE [Concomitant]
     Route: 065
     Dates: start: 20111226, end: 20111230
  212. VITAMIN B COMPOUND [Concomitant]
     Indication: HYPOVITAMINOSIS
     Route: 065
     Dates: start: 20111226, end: 20120113
  213. GLUTATHIONE [Concomitant]
     Route: 065
     Dates: start: 20111226, end: 20111229
  214. TROPISETRON HYDROCHLORIDE [Concomitant]
     Route: 065
     Dates: start: 20111228, end: 20111228
  215. TROPISETRON HYDROCHLORIDE [Concomitant]
     Route: 065
     Dates: start: 20120209, end: 20120209
  216. TROPISETRON HYDROCHLORIDE [Concomitant]
     Route: 065
     Dates: start: 20120328, end: 20120328
  217. TROPISETRON HYDROCHLORIDE [Concomitant]
     Route: 065
     Dates: start: 20120418, end: 20120418
  218. TROPISETRON HYDROCHLORIDE [Concomitant]
     Route: 065
     Dates: start: 20120510, end: 20120510
  219. TROPISETRON HYDROCHLORIDE [Concomitant]
     Route: 065
     Dates: start: 20120621, end: 20120621
  220. TROPISETRON HYDROCHLORIDE [Concomitant]
     Route: 065
     Dates: start: 20120823, end: 20120823
  221. RANITIDINE HYDROCHLORIDE [Concomitant]
     Route: 065
     Dates: start: 20111228, end: 20111228
  222. RANITIDINE HYDROCHLORIDE [Concomitant]
     Route: 065
     Dates: start: 20120119, end: 20120119
  223. RANITIDINE HYDROCHLORIDE [Concomitant]
     Route: 065
     Dates: start: 20120209, end: 20120209
  224. RANITIDINE HYDROCHLORIDE [Concomitant]
     Route: 065
     Dates: start: 20120302, end: 20120302
  225. RANITIDINE HYDROCHLORIDE [Concomitant]
     Route: 065
     Dates: start: 20120328, end: 20120328
  226. RANITIDINE HYDROCHLORIDE [Concomitant]
     Route: 065
     Dates: start: 20120531, end: 20120531
  227. RANITIDINE HYDROCHLORIDE [Concomitant]
     Route: 065
     Dates: start: 20120712, end: 20120712
  228. RANITIDINE HYDROCHLORIDE [Concomitant]
     Route: 065
     Dates: start: 20120802, end: 20120802
  229. RANITIDINE HYDROCHLORIDE [Concomitant]
     Route: 065
     Dates: start: 20120823, end: 20120823
  230. RANITIDINE HYDROCHLORIDE [Concomitant]
     Route: 065
     Dates: start: 20120914, end: 20120914
  231. RANITIDINE HYDROCHLORIDE [Concomitant]
     Route: 065
     Dates: start: 20130129, end: 20130129
  232. RANITIDINE HYDROCHLORIDE [Concomitant]
     Route: 065
     Dates: start: 20130605, end: 20130605
  233. RANITIDINE HYDROCHLORIDE [Concomitant]
     Route: 065
     Dates: start: 20130626, end: 20130626
  234. RANITIDINE HYDROCHLORIDE [Concomitant]
     Route: 065
     Dates: start: 20130717, end: 20130717
  235. RANITIDINE HYDROCHLORIDE [Concomitant]
     Route: 065
     Dates: start: 20130925, end: 20130925
  236. RANITIDINE HYDROCHLORIDE [Concomitant]
     Route: 065
     Dates: start: 20131218, end: 20131218
  237. RANITIDINE HYDROCHLORIDE [Concomitant]
     Route: 065
     Dates: start: 20140115, end: 20140115
  238. DEXAMETHASONE SODIUM PHOSPHATE [Concomitant]
     Route: 065
     Dates: start: 20111228, end: 20111228
  239. DEXAMETHASONE SODIUM PHOSPHATE [Concomitant]
     Route: 065
     Dates: start: 20120119, end: 20120119
  240. DEXAMETHASONE SODIUM PHOSPHATE [Concomitant]
     Route: 065
     Dates: start: 20120209, end: 20120209
  241. DEXAMETHASONE SODIUM PHOSPHATE [Concomitant]
     Route: 065
     Dates: start: 20120302, end: 20120302
  242. DEXAMETHASONE SODIUM PHOSPHATE [Concomitant]
     Route: 065
     Dates: start: 20120328, end: 20120328
  243. DEXAMETHASONE SODIUM PHOSPHATE [Concomitant]
     Route: 065
     Dates: start: 20120418, end: 20120418
  244. DEXAMETHASONE SODIUM PHOSPHATE [Concomitant]
     Route: 065
     Dates: start: 20120510, end: 20120510
  245. DEXAMETHASONE SODIUM PHOSPHATE [Concomitant]
     Route: 065
     Dates: start: 20120531, end: 20120531
  246. DEXAMETHASONE SODIUM PHOSPHATE [Concomitant]
     Route: 065
     Dates: start: 20120621, end: 20120621
  247. DEXAMETHASONE SODIUM PHOSPHATE [Concomitant]
     Route: 065
     Dates: start: 20120712, end: 20120712
  248. DEXAMETHASONE SODIUM PHOSPHATE [Concomitant]
     Route: 065
     Dates: start: 20120802, end: 20120802
  249. DEXAMETHASONE SODIUM PHOSPHATE [Concomitant]
     Route: 065
     Dates: start: 20120823, end: 20120823
  250. DEXAMETHASONE SODIUM PHOSPHATE [Concomitant]
     Route: 065
     Dates: start: 20120914, end: 20120914
  251. DEXAMETHASONE SODIUM PHOSPHATE [Concomitant]
     Route: 065
     Dates: start: 20121008, end: 20121008
  252. DEXAMETHASONE SODIUM PHOSPHATE [Concomitant]
     Route: 065
     Dates: start: 20121031, end: 20121031
  253. DEXAMETHASONE SODIUM PHOSPHATE [Concomitant]
     Route: 065
     Dates: start: 20121121, end: 20121121
  254. DEXAMETHASONE SODIUM PHOSPHATE [Concomitant]
     Route: 065
     Dates: start: 20121212, end: 20121212
  255. DEXAMETHASONE SODIUM PHOSPHATE [Concomitant]
     Route: 065
     Dates: start: 20130105, end: 20130105
  256. DEXAMETHASONE SODIUM PHOSPHATE [Concomitant]
     Route: 065
     Dates: start: 20130129, end: 20130129
  257. DEXAMETHASONE SODIUM PHOSPHATE [Concomitant]
     Route: 065
     Dates: start: 20130219, end: 20130219
  258. DEXAMETHASONE SODIUM PHOSPHATE [Concomitant]
     Route: 065
     Dates: start: 20130313, end: 20130313
  259. DEXAMETHASONE SODIUM PHOSPHATE [Concomitant]
     Route: 065
     Dates: start: 20130403, end: 20130403
  260. DEXAMETHASONE SODIUM PHOSPHATE [Concomitant]
     Route: 065
     Dates: start: 20130424, end: 20130424
  261. DEXAMETHASONE SODIUM PHOSPHATE [Concomitant]
     Route: 065
     Dates: start: 20130515, end: 20130515
  262. DEXAMETHASONE SODIUM PHOSPHATE [Concomitant]
     Route: 065
     Dates: start: 20130605, end: 20130605
  263. DEXAMETHASONE SODIUM PHOSPHATE [Concomitant]
     Route: 065
     Dates: start: 20130626, end: 20130626
  264. DEXAMETHASONE SODIUM PHOSPHATE [Concomitant]
     Route: 065
     Dates: start: 20130717, end: 20130717
  265. DEXAMETHASONE SODIUM PHOSPHATE [Concomitant]
     Route: 065
     Dates: start: 20130807, end: 20130807
  266. DEXAMETHASONE SODIUM PHOSPHATE [Concomitant]
     Route: 065
     Dates: start: 20130828, end: 20130828
  267. DEXAMETHASONE SODIUM PHOSPHATE [Concomitant]
     Route: 065
     Dates: start: 20130925, end: 20130925
  268. DEXAMETHASONE SODIUM PHOSPHATE [Concomitant]
     Route: 065
     Dates: start: 20131019, end: 20131019
  269. DEXAMETHASONE SODIUM PHOSPHATE [Concomitant]
     Route: 065
     Dates: start: 20131218, end: 20131218
  270. DEXAMETHASONE SODIUM PHOSPHATE [Concomitant]
     Route: 065
     Dates: start: 20140115, end: 20140115
  271. DEXAMETHASONE SODIUM PHOSPHATE [Concomitant]
     Route: 065
     Dates: start: 20140212, end: 20140212
  272. DEXAMETHASONE SODIUM PHOSPHATE [Concomitant]
     Route: 065
     Dates: start: 20140312, end: 20140312
  273. DEXAMETHASONE SODIUM PHOSPHATE [Concomitant]
     Route: 065
     Dates: start: 20131113, end: 20131113
  274. DEXAMETHASONE SODIUM PHOSPHATE [Concomitant]
     Route: 065
     Dates: start: 20111220, end: 20111221
  275. VITAMIN C TABLETS [Concomitant]
     Indication: HYPOVITAMINOSIS
     Route: 065
     Dates: start: 20111230, end: 20120112
  276. VITAMIN C TABLETS [Concomitant]
     Route: 065
     Dates: start: 20120117, end: 20120120
  277. VITAMIN C TABLETS [Concomitant]
     Route: 065
     Dates: start: 20120120, end: 20120202
  278. VITAMIN C TABLETS [Concomitant]
     Route: 065
     Dates: start: 20120210, end: 20120223
  279. VITAMIN C TABLETS [Concomitant]
     Route: 065
     Dates: start: 20120302, end: 20120316
  280. VITAMIN C TABLETS [Concomitant]
     Route: 065
     Dates: start: 20120323, end: 20120329
  281. VITAMIN C TABLETS [Concomitant]
     Route: 065
     Dates: start: 20120329, end: 20120411
  282. VITAMIN C TABLETS [Concomitant]
     Route: 065
     Dates: start: 20120419, end: 20120502
  283. VITAMIN C TABLETS [Concomitant]
     Route: 065
     Dates: start: 20120509, end: 20120522
  284. VITAMIN C TABLETS [Concomitant]
     Route: 065
     Dates: start: 20120601, end: 20120614
  285. VITAMIN C TABLETS [Concomitant]
     Route: 065
     Dates: start: 20120713, end: 20120726
  286. VITAMIN C TABLETS [Concomitant]
     Route: 065
     Dates: start: 20120622, end: 20120705
  287. VITAMIN C TABLETS [Concomitant]
     Route: 065
     Dates: start: 20120803, end: 20120816
  288. VITAMIN C TABLETS [Concomitant]
     Route: 065
     Dates: start: 20120824, end: 20120907
  289. VITAMIN C TABLETS [Concomitant]
     Route: 065
     Dates: start: 20120913, end: 20120928
  290. VITAMIN C TABLETS [Concomitant]
     Route: 065
     Dates: start: 20121009, end: 20121022
  291. VITAMIN C TABLETS [Concomitant]
     Route: 065
     Dates: start: 20121101, end: 20121114
  292. VITAMIN C TABLETS [Concomitant]
     Route: 065
     Dates: start: 20130127, end: 20130212
  293. VITAMIN C TABLETS [Concomitant]
     Route: 065
     Dates: start: 20130220, end: 20130305
  294. VITAMIN C TABLETS [Concomitant]
     Route: 065
     Dates: start: 20130314, end: 20130327
  295. VITAMIN C TABLETS [Concomitant]
     Route: 065
     Dates: start: 20130404, end: 20130410
  296. VITAMIN C TABLETS [Concomitant]
     Route: 065
     Dates: start: 20130425, end: 20130508
  297. VITAMIN C TABLETS [Concomitant]
     Route: 065
     Dates: start: 20130516, end: 20130529
  298. VITAMIN C TABLETS [Concomitant]
     Route: 065
     Dates: start: 20130606, end: 20130619
  299. VITAMIN C TABLETS [Concomitant]
     Route: 065
     Dates: start: 20130627, end: 20130703
  300. VITAMIN C TABLETS [Concomitant]
     Route: 065
     Dates: start: 20130718, end: 20130731
  301. VITAMIN C TABLETS [Concomitant]
     Route: 065
     Dates: start: 20130808, end: 20130821
  302. VITAMIN C TABLETS [Concomitant]
     Route: 065
     Dates: start: 20130829, end: 20130911
  303. VITAMIN C TABLETS [Concomitant]
     Route: 065
     Dates: start: 20130926, end: 20131009
  304. VITAMIN C TABLETS [Concomitant]
     Route: 065
     Dates: start: 20131017, end: 20131030

REACTIONS (1)
  - Proteinuria [Not Recovered/Not Resolved]
